FAERS Safety Report 15801001 (Version 2)
Quarter: 2019Q1

REPORT INFORMATION
  Report Type: Spontaneous
  Country: US (occurrence: US)
  Receive Date: 20190109
  Receipt Date: 20190205
  Transmission Date: 20190417
  Serious: Yes (Other)
  Sender: FDA-Public Use
  Company Number: US-BEH-2019098137

PATIENT
  Age: 59 Year
  Sex: Female

DRUGS (3)
  1. HIZENTRA [Suspect]
     Active Substance: HUMAN IMMUNOGLOBULIN G
     Dosage: 8 G, UNK
     Route: 058
     Dates: start: 20181229
  2. HIZENTRA [Suspect]
     Active Substance: HUMAN IMMUNOGLOBULIN G
     Indication: IMMUNODEFICIENCY COMMON VARIABLE
     Dosage: 8 G, QW
     Route: 058
     Dates: start: 20131201
  3. HIZENTRA [Suspect]
     Active Substance: HUMAN IMMUNOGLOBULIN G
     Dosage: 8 G, QW
     Route: 058
     Dates: start: 20190102

REACTIONS (8)
  - Oropharyngeal discomfort [Unknown]
  - Cough [Unknown]
  - Influenza [Unknown]
  - Bronchitis [Unknown]
  - Respiratory disorder [Unknown]
  - Chills [Unknown]
  - Pyrexia [Unknown]
  - Asthenia [Unknown]

NARRATIVE: CASE EVENT DATE: 20181230
